FAERS Safety Report 5718774-6 (Version None)
Quarter: 2008Q2

REPORT INFORMATION
  Report Type: 
  Country: None (occurrence: None)
  Receive Date: 20080425
  Receipt Date: 20080416
  Transmission Date: 20081010
  Serious: Yes (Other)
  Sender: FDA-Public Use
  Company Number: BR-PFIZER INC-2008034251

PATIENT
  Sex: Male

DRUGS (1)
  1. FRONTAL [Suspect]
     Indication: INSOMNIA
     Route: 048

REACTIONS (2)
  - DRUG INEFFECTIVE [None]
  - HEPATIC ENCEPHALOPATHY [None]
